FAERS Safety Report 7686272-9 (Version None)
Quarter: 2011Q3

REPORT INFORMATION
  Report Type: 
  Country: None (occurrence: None)
  Receive Date: 20110816
  Receipt Date: 20101230
  Transmission Date: 20111222
  Serious: No
  Sender: FDA-Public Use
  Company Number: US-GLAXOSMITHKLINE-A0902041A

PATIENT
  Sex: Male

DRUGS (1)
  1. TAGAMET [Suspect]
     Indication: ABDOMINAL DISCOMFORT
     Route: 048
     Dates: start: 19800101, end: 19950101

REACTIONS (1)
  - BREAST ENLARGEMENT [None]
